FAERS Safety Report 18401620 (Version 3)
Quarter: 2025Q3

REPORT INFORMATION
  Report Type: Spontaneous
  Country: EU (occurrence: EU)
  Receive Date: 20201020
  Receipt Date: 20250731
  Transmission Date: 20251020
  Serious: Yes (Hospitalization, Other)
  Sender: AUROBINDO
  Company Number: EU-MENARINI-IT-MEN-075137

PATIENT
  Age: 83 Year
  Sex: Female

DRUGS (1)
  1. CEFUROXIME [Suspect]
     Active Substance: CEFUROXIME
     Indication: Vertigo
     Route: 065

REACTIONS (10)
  - Bronchopulmonary aspergillosis [Unknown]
  - Pyrexia [Unknown]
  - Haemoptysis [Unknown]
  - Pulmonary necrosis [Unknown]
  - Pancytopenia [Unknown]
  - Rales [Unknown]
  - Breath sounds abnormal [Unknown]
  - Medication error [Unknown]
  - General physical health deterioration [Unknown]
  - Wrong product administered [Unknown]
